FAERS Safety Report 25807737 (Version 1)
Quarter: 2025Q3

REPORT INFORMATION
  Report Type: Spontaneous
  Country: US (occurrence: US)
  Receive Date: 20250916
  Receipt Date: 20250916
  Transmission Date: 20251020
  Serious: Yes (Hospitalization, Other)
  Sender: SHILPA MEDICARE
  Company Number: US-KOANAAP-SML-US-2025-00452

PATIENT
  Age: 72 Year
  Sex: Female

DRUGS (14)
  1. GEMCITABINE [Suspect]
     Active Substance: GEMCITABINE
     Indication: Pancreatic carcinoma metastatic
  2. GEMCITABINE [Suspect]
     Active Substance: GEMCITABINE
  3. GEMCITABINE [Suspect]
     Active Substance: GEMCITABINE
  4. IRINOTECAN [Suspect]
     Active Substance: IRINOTECAN
     Indication: Pancreatic carcinoma metastatic
  5. PACLITAXEL [Suspect]
     Active Substance: PACLITAXEL
     Indication: Pancreatic carcinoma metastatic
  6. PACLITAXEL [Suspect]
     Active Substance: PACLITAXEL
  7. PACLITAXEL [Suspect]
     Active Substance: PACLITAXEL
  8. LEUCOVORIN [Suspect]
     Active Substance: LEUCOVORIN\LEUCOVORIN CALCIUM
     Indication: Pancreatic carcinoma metastatic
  9. FLUOROURACIL [Suspect]
     Active Substance: FLUOROURACIL
     Indication: Pancreatic carcinoma metastatic
  10. OXALIPLATIN [Suspect]
     Active Substance: OXALIPLATIN
     Indication: Pancreatic carcinoma metastatic
  11. LOSARTAN [Concomitant]
     Active Substance: LOSARTAN
     Indication: Blood pressure measurement
  12. LOSARTAN [Concomitant]
     Active Substance: LOSARTAN
     Indication: Proteinuria
  13. ECULIZUMAB [Concomitant]
     Active Substance: ECULIZUMAB
     Indication: Pancreatic carcinoma metastatic
     Route: 042
  14. MENINGOCOCCAL VACCINES (ACYW AND B-4C) [Concomitant]
     Indication: Prophylaxis

REACTIONS (5)
  - Disease progression [Unknown]
  - Drug ineffective [Unknown]
  - Hypervolaemia [Unknown]
  - Thrombotic microangiopathy [Unknown]
  - Cytopenia [Unknown]
